FAERS Safety Report 9800128 (Version 1)
Quarter: 2014Q1

REPORT INFORMATION
  Report Type: Spontaneous
  Country: US (occurrence: US)
  Receive Date: 20140106
  Receipt Date: 20140106
  Transmission Date: 20141002
  Serious: No
  Sender: FDA-Public Use
  Company Number: US-TARO-2013P1018201

PATIENT
  Sex: Female

DRUGS (2)
  1. HYDROCORTISONE [Suspect]
  2. DOUBLE ANTIBIOTIC OINTMENT [Suspect]
     Route: 061
     Dates: start: 20130808

REACTIONS (1)
  - Application site rash [Not Recovered/Not Resolved]
